FAERS Safety Report 4308334-6 (Version None)
Quarter: 2004Q1

REPORT INFORMATION
  Report Type: 
  Country: None (occurrence: None)
  Receive Date: 20040301
  Receipt Date: 20030718
  Transmission Date: 20041129
  Serious: Yes (Hospitalization)
  Sender: FDA-Public Use
  Company Number: US-BRISTOL-MYERS SQUIBB COMPANY-12330429

PATIENT
  Age: 16 Year
  Sex: Male
  Weight: 96 kg

DRUGS (6)
  1. ABILIFY [Suspect]
     Indication: BIPOLAR DISORDER
     Route: 048
     Dates: start: 20030716, end: 20030721
  2. ABILIFY [Interacting]
     Indication: ABNORMAL BEHAVIOUR
     Route: 048
     Dates: start: 20030716, end: 20030721
  3. EFFEXOR [Interacting]
     Dosage: AT BEDTIME
  4. RISPERDAL [Interacting]
     Dates: end: 20030715
  5. TOPAMAX [Interacting]
     Dates: end: 20030715
  6. ZONEGRAN [Interacting]

REACTIONS (6)
  - DRUG INTERACTION [None]
  - HYPONATRAEMIA [None]
  - RENAL FAILURE ACUTE [None]
  - RHABDOMYOLYSIS [None]
  - SEROTONIN SYNDROME [None]
  - VOMITING [None]
